FAERS Safety Report 20124505 (Version 1)
Quarter: 2021Q4

REPORT INFORMATION
  Report Type: Spontaneous
  Country: US (occurrence: US)
  Receive Date: 20211129
  Receipt Date: 20211129
  Transmission Date: 20220303
  Serious: No
  Sender: FDA-Public Use
  Company Number: US-TEVA-2021-US-1980105

PATIENT
  Age: 68 Year
  Sex: Male
  Weight: 95.25 kg

DRUGS (9)
  1. CINQAIR [Suspect]
     Active Substance: RESLIZUMAB
     Indication: Hypersensitivity
     Dosage: 100 MG / 10 ML
     Route: 042
     Dates: start: 202105, end: 202108
  2. CINQAIR [Suspect]
     Active Substance: RESLIZUMAB
     Indication: Blood immunoglobulin E increased
  3. CINQAIR [Suspect]
     Active Substance: RESLIZUMAB
     Indication: Asthma
  4. VORICONAZOLE [Concomitant]
     Active Substance: VORICONAZOLE
     Indication: Blood immunoglobulin E increased
  5. SPIRIVA RESPIMAT [Concomitant]
     Active Substance: TIOTROPIUM BROMIDE
     Indication: Asthma
  6. SPIRIVA RESPIMAT [Concomitant]
     Active Substance: TIOTROPIUM BROMIDE
     Indication: Chronic obstructive pulmonary disease
  7. DULERA [Concomitant]
     Active Substance: FORMOTEROL FUMARATE DIHYDRATE\MOMETASONE FUROATE
     Indication: Asthma
  8. DULERA [Concomitant]
     Active Substance: FORMOTEROL FUMARATE DIHYDRATE\MOMETASONE FUROATE
     Indication: Chronic obstructive pulmonary disease
  9. PREDNISONE [Concomitant]
     Active Substance: PREDNISONE

REACTIONS (5)
  - Asthma [Unknown]
  - Blood immunoglobulin E increased [Recovered/Resolved]
  - Arthritis [Recovering/Resolving]
  - Pain in extremity [Recovering/Resolving]
  - Drug ineffective for unapproved indication [Unknown]

NARRATIVE: CASE EVENT DATE: 20210101
